FAERS Safety Report 8128774-7 (Version None)
Quarter: 2012Q1

REPORT INFORMATION
  Report Type: 
  Country: None (occurrence: None)
  Receive Date: 20120210
  Receipt Date: 20120207
  Transmission Date: 20120608
  Serious: Yes (Hospitalization, Other)
  Sender: FDA-Public Use
  Company Number: JP-PFIZER INC-2012023733

PATIENT
  Age: 79 Year
  Sex: Male

DRUGS (9)
  1. LYRICA [Suspect]
     Dosage: 75 MG, 2X/DAY
     Route: 048
     Dates: start: 20111101
  2. FENTANYL-100 [Suspect]
     Dosage: 2.1 MG EVERY 3 DAYS
     Route: 058
     Dates: start: 20111106
  3. LYRICA [Suspect]
     Indication: NEURALGIA
     Dosage: 75MG IN AM AND 100MG IN PM
     Route: 048
     Dates: start: 20110803, end: 20111017
  4. FENTANYL-100 [Suspect]
     Indication: SPINAL LIGAMENT OSSIFICATION
     Dosage: 2.1MG EVERY 3 DAYS
     Route: 058
     Dates: end: 20110101
  5. FENTANYL-100 [Suspect]
     Dosage: 4.2MG EVERY 3 DAYS
     Route: 058
     Dates: end: 20111209
  6. FENTANYL-100 [Suspect]
     Indication: PAIN
     Dosage: 4.2MG EVERY 3 DAYS
     Route: 058
     Dates: start: 20110101, end: 20110720
  7. LYRICA [Suspect]
     Indication: SPINAL LIGAMENT OSSIFICATION
     Dosage: 75 MG, 2X/DAY
     Route: 048
     Dates: start: 20110706, end: 20110803
  8. LOXONIN [Suspect]
     Indication: ANALGESIC THERAPY
     Dosage: 60 MG, 3X/DAY
     Route: 048
     Dates: end: 20110720
  9. LOXONIN [Suspect]
     Dosage: 60 MG, 3X/DAY
     Route: 048
     Dates: start: 20111101

REACTIONS (2)
  - ALTERED STATE OF CONSCIOUSNESS [None]
  - DYSPNOEA [None]
